FAERS Safety Report 5196282-1 (Version None)
Quarter: 2007Q1

REPORT INFORMATION
  Report Type: 
  Country: None (occurrence: None)
  Receive Date: 20070102
  Receipt Date: 20061221
  Transmission Date: 20070707
  Serious: Yes (Hospitalization)
  Sender: FDA-Public Use
  Company Number: US-PFIZER INC-2006152603

PATIENT
  Age: 62 Year
  Sex: Female

DRUGS (3)
  1. DILANTIN [Suspect]
  2. TEMODAR [Concomitant]
     Indication: GLIOBLASTOMA MULTIFORME
     Route: 048
     Dates: start: 20061027
  3. THERAPEUTIC RADIOPHARMACEUTICALS [Concomitant]
     Indication: GLIOBLASTOMA MULTIFORME
     Dates: start: 20061027

REACTIONS (9)
  - DEHYDRATION [None]
  - DISEASE PROGRESSION [None]
  - DRUG LEVEL INCREASED [None]
  - GLIOBLASTOMA MULTIFORME [None]
  - MUSCULAR WEAKNESS [None]
  - NAUSEA [None]
  - PARTIAL SEIZURES [None]
  - VISION BLURRED [None]
  - VOMITING [None]
